FAERS Safety Report 13007420 (Version 1)
Quarter: 2016Q4

REPORT INFORMATION
  Report Type: Spontaneous
  Country: US (occurrence: US)
  Receive Date: 20161207
  Receipt Date: 20161207
  Transmission Date: 20170207
  Serious: No
  Sender: FDA-Public Use
  Company Number: GXBR2016US003255

PATIENT
  Age: 80 Year
  Sex: Female

DRUGS (1)
  1. ALCLOMETASONE [Suspect]
     Active Substance: ALCLOMETASONE
     Indication: PRURITUS
     Dosage: UNK DF, UNK
     Route: 061

REACTIONS (1)
  - Drug ineffective [Not Recovered/Not Resolved]
